FAERS Safety Report 5460724-4 (Version None)
Quarter: 2007Q3

REPORT INFORMATION
  Report Type: 
  Country: None (occurrence: None)
  Receive Date: 20070919
  Receipt Date: 20070914
  Transmission Date: 20080115
  Serious: Yes (Other)
  Sender: FDA-Public Use
  Company Number: US-MERCK-0707USA04862

PATIENT
  Age: 68 Year
  Sex: Female

DRUGS (9)
  1. FOSAMAX [Suspect]
     Route: 048
     Dates: start: 20051003, end: 20070101
  2. GLIPIZIDE [Concomitant]
     Route: 065
  3. SYNTHROID [Concomitant]
     Route: 065
  4. LIPITOR [Concomitant]
     Route: 065
  5. ASPIRIN [Concomitant]
     Route: 065
  6. ACTOS [Concomitant]
     Route: 065
  7. LIDOCAINE [Concomitant]
     Route: 061
  8. GLUCOPHAGE [Concomitant]
     Route: 065
  9. PROVIGIL [Concomitant]
     Route: 065

REACTIONS (7)
  - ARTHROPATHY [None]
  - DRUG HYPERSENSITIVITY [None]
  - FALL [None]
  - ORAL TORUS [None]
  - OSTEOMYELITIS [None]
  - TOOTH EXTRACTION [None]
  - UPPER LIMB FRACTURE [None]
